FAERS Safety Report 15924125 (Version 1)
Quarter: 2019Q1

REPORT INFORMATION
  Report Type: Spontaneous
  Country: DE (occurrence: DE)
  Receive Date: 20190206
  Receipt Date: 20190206
  Transmission Date: 20190417
  Serious: Yes (Other)
  Sender: FDA-Public Use
  Company Number: DE-IPSEN BIOPHARMACEUTICALS, INC.-2019-01734

PATIENT
  Age: 59 Year
  Sex: Male
  Weight: 70 kg

DRUGS (22)
  1. BAYOTENSIN [Concomitant]
     Active Substance: NITRENDIPINE
  2. ENALAPRIL-RATIOPHARM [Concomitant]
     Active Substance: ENALAPRIL
     Dates: start: 201802
  3. L-THYROXIN BETA [Concomitant]
     Dates: start: 201802
  4. NOVAMINSULFON-RATIOPHARM [Concomitant]
     Active Substance: METAMIZOLE
     Dates: start: 201802
  5. VITAMIN B1 AND B6 [Concomitant]
     Active Substance: PYRIDOXINE HYDROCHLORIDE\THIAMINE HYDROCHLORIDE
     Dates: start: 201802
  6. CARMEN [Concomitant]
     Active Substance: LERCANIDIPINE
     Dates: start: 201802
  7. BELOC-ZOK COMP [Concomitant]
     Active Substance: HYDROCHLOROTHIAZIDE\METOPROLOL SUCCINATE
     Dates: start: 201802
  8. ONIVYDE [Suspect]
     Active Substance: IRINOTECAN HYDROCHLORIDE
     Indication: OFF LABEL USE
  9. SPIRONOLACTON-RATIOPHARM [Concomitant]
     Dates: start: 201802
  10. FLUOROURACIL. [Suspect]
     Active Substance: FLUOROURACIL
     Route: 040
  11. FOLINIC ACID [Suspect]
     Active Substance: LEUCOVORIN
     Indication: COLORECTAL CANCER METASTATIC
     Route: 065
  12. PANTOPRAZOL RATIOPHARM [Concomitant]
     Active Substance: PANTOPRAZOLE SODIUM
     Dates: start: 201802
  13. CLEXANE DUO [Concomitant]
     Dates: start: 201801, end: 20180313
  14. TOREM [Concomitant]
     Active Substance: TORSEMIDE
     Dates: start: 201802
  15. FLUOROURACIL. [Suspect]
     Active Substance: FLUOROURACIL
     Indication: COLORECTAL CANCER METASTATIC
     Route: 042
  16. PANITUMUMAB [Suspect]
     Active Substance: PANITUMUMAB
     Indication: COLORECTAL CANCER METASTATIC
     Route: 042
  17. DOXYCYCLIN-RATIOPHARM [Concomitant]
  18. FLUOROURACIL. [Suspect]
     Active Substance: FLUOROURACIL
     Route: 040
  19. PANITUMUMAB [Suspect]
     Active Substance: PANITUMUMAB
     Route: 042
  20. MOVICOL [Concomitant]
     Active Substance: POLYETHYLENE GLYCOL 3350\POTASSIUM CHLORIDE\SODIUM BICARBONATE\SODIUM CHLORIDE
  21. ONIVYDE [Suspect]
     Active Substance: IRINOTECAN HYDROCHLORIDE
     Indication: COLORECTAL CANCER METASTATIC
     Route: 065
  22. MOXONIDIN-RATIOPHARM [Concomitant]
     Dates: start: 201802

REACTIONS (2)
  - Drug eruption [Recovering/Resolving]
  - Leukopenia [Recovering/Resolving]

NARRATIVE: CASE EVENT DATE: 20180327
